FAERS Safety Report 4910591-X (Version None)
Quarter: 2006Q1

REPORT INFORMATION
  Report Type: 
  Country: None (occurrence: None)
  Receive Date: 20060214
  Receipt Date: 20060203
  Transmission Date: 20060701
  Serious: Yes (Other)
  Sender: FDA-Public Use
  Company Number: FR-JNJFOC-20060105594

PATIENT
  Age: 32 Year
  Sex: Female
  Weight: 59 kg

DRUGS (9)
  1. REMICADE [Suspect]
     Indication: SPONDYLOARTHROPATHY
     Route: 042
  2. REMICADE [Suspect]
     Indication: RHEUMATOID ARTHRITIS
     Dosage: 2 INFUSIONS
     Route: 042
  3. METHOTREXATE [Concomitant]
     Indication: SPONDYLOARTHROPATHY
  4. METHOTREXATE [Concomitant]
     Indication: RHEUMATOID ARTHRITIS
  5. ANAFRANYL [Concomitant]
     Indication: DEPRESSION
  6. TOPALGIC [Concomitant]
     Indication: SPONDYLOARTHROPATHY
  7. BIPROFENID [Concomitant]
     Indication: SPONDYLOARTHROPATHY
  8. CORTANCYL [Concomitant]
     Indication: SPONDYLOARTHROPATHY
     Dosage: 5+2MG FOR SEVERAL YEARS
  9. OGAST [Concomitant]
     Indication: PROPHYLAXIS

REACTIONS (1)
  - AGRANULOCYTOSIS [None]
